FAERS Safety Report 10693006 (Version 4)
Quarter: 2015Q4

REPORT INFORMATION
  Report Type: Report from Study
  Country: KR (occurrence: KR)
  Receive Date: 20150106
  Receipt Date: 20151012
  Transmission Date: 20160304
  Serious: No
  Sender: FDA-Public Use
  Company Number: KR-OTSUKA-JP-2015-10034

PATIENT

DRUGS (18)
  1. TRIMETAZIDINE [Concomitant]
     Active Substance: TRIMETAZIDINE
     Indication: HYPONATRAEMIA
     Dosage: 70 MG, QD
     Route: 048
     Dates: start: 20141217
  2. TAMADOL [Concomitant]
     Indication: HYPONATRAEMIA
     Dosage: 100 MG, QD
     Route: 042
     Dates: start: 20141227, end: 20141228
  3. HYDROCHLOROTHIAZIDE. [Concomitant]
     Active Substance: HYDROCHLOROTHIAZIDE
     Indication: HYPONATRAEMIA
     Dosage: 25 MG, QD
     Route: 048
     Dates: start: 20141231
  4. FUROSEMIDE. [Concomitant]
     Active Substance: FUROSEMIDE
     Indication: HYPONATRAEMIA
     Dosage: 20 MG, QD
     Route: 042
     Dates: start: 20141225, end: 20141227
  5. SPIRONOLACTONE. [Concomitant]
     Active Substance: SPIRONOLACTONE
     Dosage: 25 MG, QD
     Route: 048
     Dates: start: 20141228, end: 20141228
  6. DOPAMIX [Concomitant]
     Indication: HYPONATRAEMIA
     Dosage: 1 DF, QD
     Route: 042
     Dates: start: 20141226
  7. TOLVAPTAN [Suspect]
     Active Substance: TOLVAPTAN
     Indication: HYPONATRAEMIA
     Dosage: 15 MG, QD
     Route: 048
     Dates: start: 20141225, end: 20141227
  8. CEFTRIAXONE. [Concomitant]
     Active Substance: CEFTRIAXONE
     Indication: PROPHYLAXIS
     Dosage: 2 G, QD
     Route: 042
     Dates: start: 20141218, end: 20141229
  9. CEFOTAXIME [Concomitant]
     Active Substance: CEFOTAXIME SODIUM
     Indication: PROPHYLAXIS
     Dosage: 2 G, QD
     Route: 042
     Dates: start: 20141229
  10. FUROSEMIDE. [Concomitant]
     Active Substance: FUROSEMIDE
     Dosage: 40 MG, QD
     Route: 042
     Dates: start: 20141230
  11. ASPIRIN. [Concomitant]
     Active Substance: ASPIRIN
     Indication: HYPONATRAEMIA
     Dosage: 100 MG, QD
     Route: 048
     Dates: start: 20141220
  12. METOCLOPRAMIDE. [Concomitant]
     Active Substance: METOCLOPRAMIDE
     Indication: HYPONATRAEMIA
     Dosage: 10 MG, QD
     Route: 042
     Dates: start: 20141218, end: 20141226
  13. SPIRONOLACTONE. [Concomitant]
     Active Substance: SPIRONOLACTONE
     Indication: HYPONATRAEMIA
     Dosage: 25 MG, QD
     Route: 048
     Dates: start: 20141211, end: 20141227
  14. ZOLPIDEM [Concomitant]
     Active Substance: ZOLPIDEM\ZOLPIDEM TARTRATE
     Indication: HYPONATRAEMIA
     Dosage: 5 MG, QD
     Route: 048
     Dates: start: 20141225
  15. TOLVAPTAN [Suspect]
     Active Substance: TOLVAPTAN
     Dosage: 15 MG, QD
     Route: 048
     Dates: start: 20141229, end: 20141229
  16. TOLVAPTAN [Suspect]
     Active Substance: TOLVAPTAN
     Dosage: 15 MG, BID
     Route: 048
     Dates: start: 20141230, end: 20141230
  17. TOLVAPTAN [Suspect]
     Active Substance: TOLVAPTAN
     Dosage: 30 MG, QD
     Route: 048
     Dates: start: 20141231
  18. CAPTOPRIL. [Concomitant]
     Active Substance: CAPTOPRIL
     Indication: HYPONATRAEMIA
     Dosage: 12.5 MG, QD
     Route: 048
     Dates: start: 20141212

REACTIONS (6)
  - Inappropriate schedule of drug administration [Unknown]
  - Tachypnoea [Recovered/Resolved]
  - Dyspnoea [Recovered/Resolved]
  - Hypotension [Recovered/Resolved]
  - Post procedural haemorrhage [Recovered/Resolved]
  - Hypokalaemia [Recovered/Resolved]

NARRATIVE: CASE EVENT DATE: 20141228
